FAERS Safety Report 5344014-6 (Version None)
Quarter: 2007Q2

REPORT INFORMATION
  Report Type: 
  Country: None (occurrence: None)
  Receive Date: 20070416
  Receipt Date: 20070123
  Transmission Date: 20071010
  Serious: No
  Sender: FDA-Public Use
  Company Number: 2007SP000256

PATIENT
  Age: 63 Year
  Sex: Female
  Weight: 43.5453 kg

DRUGS (3)
  1. LUNESTA [Suspect]
     Indication: INSOMNIA
     Dosage: 1 MG;HS;ORAL
     Route: 048
     Dates: start: 20061001
  2. XANAX [Concomitant]
  3. TRAMADOL HCL [Concomitant]

REACTIONS (1)
  - INITIAL INSOMNIA [None]
